FAERS Safety Report 22399431 (Version 1)
Quarter: 2023Q2

REPORT INFORMATION
  Report Type: Spontaneous
  Country: US (occurrence: US)
  Receive Date: 20230602
  Receipt Date: 20230602
  Transmission Date: 20230721
  Serious: Yes (Hospitalization, Other)
  Sender: FDA-Public Use
  Company Number: US-MYLANLABS-2023M1057250

PATIENT
  Age: 6 Decade
  Sex: Female

DRUGS (5)
  1. GEMCITABINE [Suspect]
     Active Substance: GEMCITABINE
     Indication: Invasive ductal breast carcinoma
     Dosage: 1000 MILLIGRAM/SQ. METER, CYCLE (ADMINISTERED ON DAYS 1 AND 8 OF A 21-DAY CYCLE)
     Route: 065
  2. TRASTUZUMAB [Suspect]
     Active Substance: TRASTUZUMAB
     Indication: Invasive ductal breast carcinoma
     Dosage: UNK, CYCLE
     Route: 065
  3. DOXORUBICIN [Suspect]
     Active Substance: DOXORUBICIN
     Indication: Invasive ductal breast carcinoma
     Dosage: UNK, QW
     Route: 065
  4. CARBOPLATIN [Suspect]
     Active Substance: CARBOPLATIN
     Indication: Invasive ductal breast carcinoma
     Dosage: UNK
     Route: 065
  5. MARGETUXIMAB [Concomitant]
     Active Substance: MARGETUXIMAB
     Indication: Invasive ductal breast carcinoma
     Dosage: 15 MILLIGRAM/KILOGRAM, CYCLE (ADMINISTERED ON DAY 1 OF A 21-DAY CYCLE)
     Route: 065

REACTIONS (4)
  - Ischaemia [Recovering/Resolving]
  - Dry gangrene [Recovering/Resolving]
  - Drug ineffective [Unknown]
  - Disease progression [Unknown]
